FAERS Safety Report 16784490 (Version 4)
Quarter: 2019Q4

REPORT INFORMATION
  Report Type: Spontaneous
  Country: GB (occurrence: GB)
  Receive Date: 20190909
  Receipt Date: 20191104
  Transmission Date: 20200122
  Serious: Yes (Other)
  Sender: FDA-Public Use
  Company Number: GB-SA-2018SA333902

PATIENT
  Age: 57 Year
  Sex: Female
  Weight: 74 kg

DRUGS (3)
  1. CETIRIZINE [Concomitant]
     Active Substance: CETIRIZINE HYDROCHLORIDE
     Dosage: 10 MG, QD
  2. DUPILUMAB [Suspect]
     Active Substance: DUPILUMAB
     Indication: ECZEMA
     Dosage: 600 MG, 1X
     Route: 058
     Dates: start: 20180725, end: 20180725
  3. DUPILUMAB [Suspect]
     Active Substance: DUPILUMAB
     Indication: DERMATITIS ATOPIC
     Dosage: 300 MG, QOW
     Route: 058

REACTIONS (8)
  - Hilar lymphadenopathy [Unknown]
  - Skin lesion [Recovered/Resolved]
  - Asthma [Recovering/Resolving]
  - Erythema nodosum [Recovered/Resolved]
  - Sarcoidosis [Not Recovered/Not Resolved]
  - Conjunctivitis [Unknown]
  - Skin plaque [Not Recovered/Not Resolved]
  - Granuloma [Unknown]

NARRATIVE: CASE EVENT DATE: 20190710
